FAERS Safety Report 20556257 (Version 10)
Quarter: 2023Q4

REPORT INFORMATION
  Report Type: Report from Study
  Country: US (occurrence: US)
  Receive Date: 20220305
  Receipt Date: 20231114
  Transmission Date: 20240110
  Serious: Yes (Hospitalization, Other)
  Sender: FDA-Public Use
  Company Number: US-NOVARTISPH-NVSC2022US050704

PATIENT
  Sex: Female

DRUGS (3)
  1. TABRECTA [Suspect]
     Active Substance: CAPMATINIB
     Indication: Product used for unknown indication
     Dosage: UNK
     Route: 048
     Dates: start: 20220217
  2. TASIGNA [Suspect]
     Active Substance: NILOTINIB
     Indication: Neoplasm malignant
     Dosage: UNK
     Route: 065
  3. TASIGNA [Suspect]
     Active Substance: NILOTINIB
     Indication: Swelling

REACTIONS (19)
  - Peripheral venous disease [Unknown]
  - Peripheral swelling [Not Recovered/Not Resolved]
  - Pulmonary fibrosis [Unknown]
  - Metastases to abdominal cavity [Unknown]
  - Neoplasm malignant [Unknown]
  - Sleep disorder [Unknown]
  - Pollakiuria [Unknown]
  - Myalgia [Unknown]
  - Taste disorder [Unknown]
  - Cough [Unknown]
  - Dyspnoea [Unknown]
  - Constipation [Unknown]
  - Vomiting projectile [Unknown]
  - Fatigue [Unknown]
  - Anxiety [Unknown]
  - Stress [Unknown]
  - Gait disturbance [Unknown]
  - Product dose omission issue [Unknown]
  - Swelling [Unknown]
